FAERS Safety Report 25339716 (Version 2)
Quarter: 2025Q2

REPORT INFORMATION
  Report Type: Spontaneous
  Country: US (occurrence: US)
  Receive Date: 20250521
  Receipt Date: 20250604
  Transmission Date: 20250716
  Serious: No
  Sender: ROCHE
  Company Number: US-ROCHE-10000281423

PATIENT
  Sex: Female

DRUGS (1)
  1. XOLAIR [Suspect]
     Active Substance: OMALIZUMAB
     Indication: Urticaria chronic
     Route: 058
     Dates: start: 202502

REACTIONS (5)
  - Arthralgia [Unknown]
  - Injection site reaction [Unknown]
  - Nasopharyngitis [Unknown]
  - Sinus congestion [Unknown]
  - Upper respiratory tract infection [Unknown]
